FAERS Safety Report 5011640-3 (Version None)
Quarter: 2006Q2

REPORT INFORMATION
  Report Type: 
  Country: None (occurrence: None)
  Receive Date: 20060526
  Receipt Date: 20060518
  Transmission Date: 20061013
  Serious: Yes (Other)
  Sender: FDA-Public Use
  Company Number: US-JNJFOC-20060504329

PATIENT
  Age: 72 Year
  Sex: Male
  Weight: 72.58 kg

DRUGS (4)
  1. REMICADE [Suspect]
     Indication: RHEUMATOID ARTHRITIS
     Route: 042
  2. TRIAMTERENE AND HYDROCHLOROTHIAZIDE [Concomitant]
     Indication: BLOOD PRESSURE
     Dosage: 37.5/25 MG DAILY
  3. CALTRATE [Concomitant]
  4. FOSAMAX D [Concomitant]
     Indication: OSTEOPOROSIS

REACTIONS (1)
  - DEAFNESS UNILATERAL [None]
